FAERS Safety Report 8399894-7 (Version None)
Quarter: 2012Q2

REPORT INFORMATION
  Report Type: 
  Country: None (occurrence: None)
  Receive Date: 20120531
  Receipt Date: 20120521
  Transmission Date: 20120825
  Serious: No
  Sender: FDA-Public Use
  Company Number: US-ELI_LILLY_AND_COMPANY-US201204001073

PATIENT
  Sex: Female
  Weight: 68.934 kg

DRUGS (10)
  1. ULTRACET [Concomitant]
     Dosage: UNK, BID
  2. OMEPRAZOLE [Concomitant]
     Dosage: 20 MG, QD
  3. LOSARTAN POTASSIUM [Concomitant]
     Dosage: 25 MG, QD
  4. FORTEO [Suspect]
     Indication: OSTEOPOROSIS
     Dosage: 20 UG, QD
     Route: 058
     Dates: start: 20120401, end: 20120501
  5. QVAR 40 [Concomitant]
     Dosage: 80 UG, BID
     Route: 048
  6. SIMVASTATIN [Concomitant]
     Dosage: 20 MG, QD
  7. MIRALAX [Concomitant]
     Dosage: UNK
  8. ZANTAC [Concomitant]
     Dosage: 150 MG, EACH EVENING AT BEDTIME
  9. RESTASIS [Concomitant]
     Dosage: UNK, BID
     Route: 047
  10. NEURONTIN [Concomitant]
     Dosage: 100 MG, EACH EVENING AT BEDTIME

REACTIONS (6)
  - DIZZINESS [None]
  - BACK INJURY [None]
  - ABDOMINAL DISCOMFORT [None]
  - NAUSEA [None]
  - INTENTIONAL DRUG MISUSE [None]
  - BLOOD CALCIUM DECREASED [None]
